FAERS Safety Report 5565674-0 (Version None)
Quarter: 2007Q4

REPORT INFORMATION
  Report Type: 
  Country: None (occurrence: None)
  Receive Date: 20071218
  Receipt Date: 20071207
  Transmission Date: 20080405
  Serious: Yes (Other)
  Sender: FDA-Public Use
  Company Number: GB-RANBAXY-2007RR-11281

PATIENT

DRUGS (4)
  1. RISPERIDONE [Suspect]
     Indication: CONDUCT DISORDER
     Dosage: 0.5 MG, QD
     Dates: start: 20051001
  2. RISPERIDONE [Suspect]
     Dosage: 1.5 MG, UNK
     Route: 048
     Dates: start: 20051001, end: 20060201
  3. CONCERTA [Suspect]
     Indication: ATTENTION DEFICIT/HYPERACTIVITY DISORDER
     Dosage: 36 MG, UNK
     Route: 048
     Dates: start: 20060201, end: 20060101
  4. CONCERTA [Suspect]
     Dosage: 18 MG, UNK

REACTIONS (2)
  - DRUG INTERACTION [None]
  - DYSKINESIA [None]
